FAERS Safety Report 12341497 (Version 1)
Quarter: 2016Q2

REPORT INFORMATION
  Report Type: Spontaneous
  Country: US (occurrence: US)
  Receive Date: 20160506
  Receipt Date: 20160506
  Transmission Date: 20160815
  Serious: Yes (Hospitalization, Other)
  Sender: FDA-Public Use
  Company Number: US-GLAXOSMITHKLINE-US2016063244

PATIENT
  Age: 38 Year
  Sex: Male

DRUGS (1)
  1. THERAFLU EXPRESSMAX FLU, COUGH, AND SORE THROAT [Suspect]
     Active Substance: ACETAMINOPHEN\DIPHENHYDRAMINE HYDROCHLORIDE\PHENYLEPHRINE HYDROCHLORIDE
     Indication: NASOPHARYNGITIS
     Dosage: UNK
     Dates: start: 20160427, end: 20160427

REACTIONS (6)
  - Laceration [Recovered/Resolved]
  - Headache [Unknown]
  - Head injury [Recovered/Resolved]
  - Amnesia [Unknown]
  - Haemorrhage [Recovered/Resolved]
  - Somnambulism [Recovered/Resolved]

NARRATIVE: CASE EVENT DATE: 20160427
